FAERS Safety Report 8896159 (Version 2)
Quarter: 2012Q4

REPORT INFORMATION
  Report Type: 
  Country: PT (occurrence: PT)
  Receive Date: 20121108
  Receipt Date: 20121119
  Transmission Date: 20130627
  Serious: Yes (Hospitalization, Congenital Anomaly, Other)
  Sender: FDA-Public Use
  Company Number: PT-BAYER-2012-114337

PATIENT
  Sex: Male
  Weight: 2.77 kg

DRUGS (4)
  1. BETAFERON [Suspect]
     Dosage: UNK
     Route: 064
  2. IMMUNOGLOBULIN [Concomitant]
     Dosage: UNK
     Route: 064
     Dates: start: 201107
  3. IMMUNOGLOBULIN [Concomitant]
     Dosage: UNK
     Route: 063
     Dates: start: 201108
  4. TRIMETHOPRIM [Concomitant]
     Indication: PROPHYLAXIS NOS
     Dosage: 0.5 ml, HS

REACTIONS (11)
  - Poor weight gain neonatal [None]
  - Pyelonephritis acute [Recovered/Resolved]
  - Renal aplasia [None]
  - Renal aplasia [None]
  - Congenital urinary tract obstruction [None]
  - Congenital ureterovesical junction anomaly [None]
  - Congenital vesicoureteric reflux [None]
  - Ectopic kidney [None]
  - Ectopic kidney [None]
  - Clavicle fracture [None]
  - Maternal exposure during pregnancy [None]
